FAERS Safety Report 4962466-8 (Version None)
Quarter: 2006Q1

REPORT INFORMATION
  Report Type: 
  Country: None (occurrence: None)
  Receive Date: 20060329
  Receipt Date: 20060322
  Transmission Date: 20060701
  Serious: Yes (Hospitalization)
  Sender: FDA-Public Use
  Company Number: S05-USA-00393-01

PATIENT
  Age: 91 Year
  Sex: Female
  Weight: 64.4108 kg

DRUGS (8)
  1. NAMENDA [Suspect]
     Indication: DEMENTIA ALZHEIMER'S TYPE
     Dosage: 10 MG BID PO
     Route: 048
     Dates: start: 20040415, end: 20060302
  2. ARICEPT [Concomitant]
  3. ASPIRIN [Concomitant]
  4. COLACE (DOCUSATE SODIUM) [Concomitant]
  5. VITAMIN B12 [Concomitant]
  6. TYLENOL [Concomitant]
  7. TUMS (CALCIUM CARBONATE) [Concomitant]
  8. MULTIVITAMIN [Concomitant]

REACTIONS (4)
  - COGNITIVE DETERIORATION [None]
  - DRUG INEFFECTIVE [None]
  - FALL [None]
  - HIP FRACTURE [None]
